FAERS Safety Report 22038045 (Version 4)
Quarter: 2023Q1

REPORT INFORMATION
  Report Type: Report from Study
  Country: ES (occurrence: None)
  Receive Date: 20230227
  Receipt Date: 20230328
  Transmission Date: 20230418
  Serious: Yes (Hospitalization)
  Sender: FDA-Public Use
  Company Number: ES-ROCHE-3061737

PATIENT
  Age: 72 Year
  Sex: Male

DRUGS (45)
  1. ATEZOLIZUMAB [Suspect]
     Active Substance: ATEZOLIZUMAB
     Indication: Hepatocellular carcinoma
     Dosage: LAST DOSE BEFORE AE ON 15/MAR/2022 AT 10:02, ?LAST DOSE BEFORE AE: 10/AUG/2022, 22/NOV/2022, 12:54
     Route: 041
     Dates: start: 20210817
  2. BEVACIZUMAB [Suspect]
     Active Substance: BEVACIZUMAB
     Indication: Hepatocellular carcinoma
     Dosage: LAST DOSE BEFORE AE ON 15/MAR/2022 AT 10:57?LAST DOSE BEFORE AE ON 10/AUG/2022, 22/NOV/2022 13:45
     Route: 042
     Dates: start: 20210817
  3. ACETAMINOPHEN [Concomitant]
     Active Substance: ACETAMINOPHEN
     Indication: Arthralgia
     Route: 048
     Dates: start: 20210803, end: 20210929
  4. ACETAMINOPHEN [Concomitant]
     Active Substance: ACETAMINOPHEN
     Indication: Arthritis
     Route: 048
     Dates: start: 20210929
  5. ACETAMINOPHEN [Concomitant]
     Active Substance: ACETAMINOPHEN
     Route: 048
     Dates: start: 20220711
  6. ZALDIAR [Concomitant]
     Active Substance: ACETAMINOPHEN\TRAMADOL HYDROCHLORIDE
     Indication: Arthritis
     Dosage: 2 TABLET
     Route: 048
     Dates: end: 20211008
  7. ZALDIAR [Concomitant]
     Active Substance: ACETAMINOPHEN\TRAMADOL HYDROCHLORIDE
     Indication: Arthralgia
     Dosage: I TABLRT
     Route: 048
     Dates: start: 20211021, end: 20211221
  8. ZALDIAR [Concomitant]
     Active Substance: ACETAMINOPHEN\TRAMADOL HYDROCHLORIDE
     Route: 048
     Dates: start: 20220711
  9. ALLOPURINOL [Concomitant]
     Active Substance: ALLOPURINOL
     Indication: Gout
     Route: 048
     Dates: start: 20210803, end: 20220413
  10. VENOSMIL [Concomitant]
     Dosage: 1 TABLET
     Route: 048
     Dates: end: 20210929
  11. VENOSMIL [Concomitant]
     Route: 048
     Dates: start: 20211021, end: 20220405
  12. VENOSMIL [Concomitant]
     Route: 048
     Dates: start: 20210405, end: 20220719
  13. VENOSMIL [Concomitant]
     Route: 048
     Dates: start: 20210929, end: 20211008
  14. VENOSMIL [Concomitant]
     Route: 048
     Dates: start: 20211008, end: 20211021
  15. VENOSMIL [Concomitant]
     Route: 048
     Dates: start: 20220719
  16. LORMETAZEPAM [Concomitant]
     Active Substance: LORMETAZEPAM
     Indication: Insomnia
     Route: 048
     Dates: start: 20210727, end: 20220517
  17. LORMETAZEPAM [Concomitant]
     Active Substance: LORMETAZEPAM
     Route: 048
     Dates: start: 20220517, end: 20220720
  18. LORMETAZEPAM [Concomitant]
     Active Substance: LORMETAZEPAM
     Route: 048
     Dates: start: 20220720
  19. OMEPRAZOLE [Concomitant]
     Active Substance: OMEPRAZOLE
     Dosage: EVERY OTHER DAY
     Route: 048
  20. SALIDUR [Concomitant]
     Indication: Hypertension
     Dosage: 1 TABLET
     Route: 048
     Dates: end: 20211202
  21. SALIDUR [Concomitant]
     Route: 048
     Dates: start: 20220201, end: 20220405
  22. SALIDUR [Concomitant]
     Route: 048
     Dates: start: 20220405
  23. RAMIPRIL [Concomitant]
     Active Substance: RAMIPRIL
     Indication: Hypertension
     Route: 048
     Dates: start: 20210929, end: 20211008
  24. RAMIPRIL [Concomitant]
     Active Substance: RAMIPRIL
     Route: 048
     Dates: start: 20211008
  25. FUROSEMIDE [Concomitant]
     Active Substance: FUROSEMIDE
     Indication: Hypertension
     Route: 048
     Dates: start: 20211202
  26. FUROSEMIDE [Concomitant]
     Active Substance: FUROSEMIDE
     Route: 048
     Dates: start: 20220831, end: 20220920
  27. FUROSEMIDE [Concomitant]
     Active Substance: FUROSEMIDE
     Route: 048
     Dates: start: 20220920
  28. CARVEDILOL [Concomitant]
     Active Substance: CARVEDILOL
     Indication: Hypertension
     Route: 048
     Dates: start: 20211111, end: 20211202
  29. AMLODIPINE [Concomitant]
     Active Substance: AMLODIPINE BESYLATE
     Indication: Hypertension
     Route: 048
     Dates: start: 20211015, end: 20211020
  30. AMLODIPINE [Concomitant]
     Active Substance: AMLODIPINE BESYLATE
     Route: 048
     Dates: start: 20211021
  31. CAPTOPRIL [Concomitant]
     Active Substance: CAPTOPRIL
     Indication: Hypertension
     Route: 048
     Dates: start: 20220405, end: 20220405
  32. DESLORATADINE [Concomitant]
     Active Substance: DESLORATADINE
     Dosage: 1 TABLET
     Route: 048
     Dates: start: 20220222, end: 20220330
  33. DESLORATADINE [Concomitant]
     Active Substance: DESLORATADINE
     Dosage: 1 TABLET
     Route: 048
     Dates: start: 20220414, end: 20220719
  34. DESLORATADINE [Concomitant]
     Active Substance: DESLORATADINE
     Dosage: 2 TABLET
     Route: 048
     Dates: start: 20220810, end: 20220920
  35. DESLORATADINE [Concomitant]
     Active Substance: DESLORATADINE
     Dosage: 2 TABLET
     Route: 048
     Dates: start: 20220920
  36. DESLORATADINE [Concomitant]
     Active Substance: DESLORATADINE
     Dosage: 1 TABLET
     Route: 048
     Dates: start: 20220720, end: 20220809
  37. MEROPENEM [Concomitant]
     Active Substance: MEROPENEM
     Route: 042
     Dates: start: 20220828, end: 20220829
  38. CEFUROXIME [Concomitant]
     Active Substance: CEFUROXIME
     Route: 048
     Dates: start: 20220831, end: 20220909
  39. CEFUROXIME [Concomitant]
     Active Substance: CEFUROXIME
     Route: 048
     Dates: start: 20220902
  40. ACYCLOVIR [Concomitant]
     Active Substance: ACYCLOVIR
     Dosage: 50 MG/G
     Route: 061
     Dates: start: 20220831, end: 20220920
  41. PIPERACILLIN [Concomitant]
     Active Substance: PIPERACILLIN
     Indication: Pyrexia
     Route: 048
     Dates: start: 20230102, end: 20230105
  42. TAZOBACTAM [Concomitant]
     Active Substance: TAZOBACTAM
     Indication: Pyrexia
     Route: 048
     Dates: start: 20230102, end: 20230105
  43. ZINC OXIDE [Concomitant]
     Active Substance: ZINC OXIDE
     Indication: Pruritus
     Dosage: 1 TOPIC APPLICATION
     Route: 062
     Dates: start: 20221221
  44. LEVOFLOXACIN [Concomitant]
     Active Substance: LEVOFLOXACIN
     Indication: Infected skin ulcer
     Route: 048
     Dates: start: 20221214, end: 20221222
  45. CEFTAZIDIME [Concomitant]
     Active Substance: CEFTAZIDIME
     Indication: Infected skin ulcer
     Route: 042
     Dates: start: 20221214, end: 20221217

REACTIONS (5)
  - Cellulitis [Recovered/Resolved]
  - Cellulitis [Recovered/Resolved]
  - Confusional state [Recovered/Resolved]
  - Hepatic encephalopathy [Recovered/Resolved]
  - Toxic skin eruption [Recovered/Resolved]

NARRATIVE: CASE EVENT DATE: 20220325
